FAERS Safety Report 9421334 (Version 1)
Quarter: 2013Q3

REPORT INFORMATION
  Report Type: Spontaneous
  Country: AU (occurrence: AU)
  Receive Date: 20130725
  Receipt Date: 20130725
  Transmission Date: 20140515
  Serious: No
  Sender: FDA-Public Use
  Company Number: AU-009507513-1307AUS008632

PATIENT
  Age: 30 Month
  Sex: Female
  Weight: 12.5 kg

DRUGS (1)
  1. LORATADINE [Suspect]
     Dosage: 10 MG, UNK
     Route: 048
     Dates: start: 20080317, end: 20080317

REACTIONS (2)
  - Accidental exposure to product by child [Unknown]
  - Accidental overdose [Unknown]
